FAERS Safety Report 5849459-3 (Version None)
Quarter: 2008Q3

REPORT INFORMATION
  Report Type: 
  Country: None (occurrence: None)
  Receive Date: 20080731
  Receipt Date: 20080601
  Transmission Date: 20090109
  Serious: No
  Sender: FDA-Public Use
  Company Number: US200806000305

PATIENT
  Age: 50 Year
  Sex: Female

DRUGS (5)
  1. BYETTA [Suspect]
     Indication: INSULIN-REQUIRING TYPE 2 DIABETES MELLITUS
     Dosage: 5 UG, 2/D, SUBCUTANEOUS ; 10 UG, 2/D, SUBCUTANEOUS ; 20 UG, OTHER, SUBCUTANEOUS
     Route: 058
     Dates: start: 20070701, end: 20080101
  2. BYETTA [Suspect]
     Indication: INSULIN-REQUIRING TYPE 2 DIABETES MELLITUS
     Dosage: 5 UG, 2/D, SUBCUTANEOUS ; 10 UG, 2/D, SUBCUTANEOUS ; 20 UG, OTHER, SUBCUTANEOUS
     Route: 058
     Dates: start: 20080601, end: 20080601
  3. BYETTA [Suspect]
     Indication: INSULIN-REQUIRING TYPE 2 DIABETES MELLITUS
     Dosage: 5 UG, 2/D, SUBCUTANEOUS ; 10 UG, 2/D, SUBCUTANEOUS ; 20 UG, OTHER, SUBCUTANEOUS
     Route: 058
     Dates: start: 20080101
  4. INSULIN (INSULIN) [Concomitant]
  5. METFORMIN HCL [Concomitant]

REACTIONS (1)
  - ACCIDENTAL OVERDOSE [None]
